FAERS Safety Report 7300562 (Version 7)
Quarter: 2013Q2

REPORT INFORMATION
  Report Type: Spontaneous
  Country: US (occurrence: None)
  Receive Date: 20100212
  Receipt Date: 20130410
  Transmission Date: 20140414
  Serious: Yes (Hospitalization)
  Sender: FDA-Public Use
  Company Number: DSU-2010-00403

PATIENT
  Age: 63 Year
  Sex: Female
  Weight: 102.06 kg

DRUGS (9)
  1. BENICAR [Suspect]
     Indication: HYPERTENSION
     Route: 048
     Dates: start: 200209, end: 200801
  2. BENICAR HCT [Suspect]
     Indication: HYPERTENSION
     Route: 048
     Dates: start: 2002, end: 2005
  3. HYDROCHLOROTHIAZIDE [Suspect]
     Indication: HYPERTENSION
     Route: 048
     Dates: start: 2005, end: 200801
  4. UNSPECIFIED INGREDIENT [Suspect]
     Indication: PRODUCT USED FOR UNKNOWN INDICATION
     Dates: start: 200909, end: 200909
  5. CIPRO [Suspect]
     Indication: LOCALISED INFECTION
  6. AMLODIPINE (AMLODIPINE) [Suspect]
     Indication: HYPERTENSION
     Route: 048
     Dates: start: 201302, end: 20130326
  7. INSULIN [Concomitant]
  8. ECOTRIN [Concomitant]
  9. HUMULIN 70/30 (INSULIN HUMAN, INSULIN HUMAN INJECTION, ISOPHANE) [Concomitant]

REACTIONS (12)
  - Abdominal pain upper [None]
  - Diarrhoea [None]
  - Hypotension [None]
  - Transient ischaemic attack [None]
  - Carotid artery occlusion [None]
  - Hypertension [None]
  - Cerebrovascular accident [None]
  - Heart rate decreased [None]
  - Allergy to chemicals [None]
  - Wound [None]
  - Staphylococcal infection [None]
  - Blood pressure fluctuation [None]
